FAERS Safety Report 17086559 (Version 1)
Quarter: 2019Q4

REPORT INFORMATION
  Report Type: Spontaneous
  Country: FR (occurrence: FR)
  Receive Date: 20191128
  Receipt Date: 20191128
  Transmission Date: 20200122
  Serious: Yes (Hospitalization, Other)
  Sender: FDA-Public Use
  Company Number: FR-AUROBINDO-AUR-APL-2019-074961

PATIENT
  Age: 81 Year
  Sex: Female
  Weight: 62 kg

DRUGS (1)
  1. TRAMADOL. [Suspect]
     Active Substance: TRAMADOL
     Indication: MYALGIA
     Dosage: 200 MILLIGRAM, ONCE A DAY,AUGMENTATION DE LA POSOLOGIE DEPUIS LE 03/10/2019
     Route: 048
     Dates: end: 20191011

REACTIONS (1)
  - Epilepsy [Recovered/Resolved with Sequelae]

NARRATIVE: CASE EVENT DATE: 20191006
